FAERS Safety Report 9215838 (Version 1)
Quarter: 2013Q2

REPORT INFORMATION
  Report Type: Spontaneous
  Country: US (occurrence: US)
  Receive Date: 20130408
  Receipt Date: 20130408
  Transmission Date: 20140414
  Serious: No
  Sender: FDA-Public Use
  Company Number: US-BIOGENIDEC-2013BI029908

PATIENT
  Age: 40 Year
  Sex: Female

DRUGS (1)
  1. TYSABRI [Suspect]
     Indication: MULTIPLE SCLEROSIS
     Route: 042
     Dates: start: 20120517

REACTIONS (6)
  - Presyncope [Recovered/Resolved]
  - Syncope [Recovered/Resolved]
  - Menstruation irregular [Unknown]
  - Menorrhagia [Unknown]
  - Nausea [Recovered/Resolved]
  - Hypotension [Recovered/Resolved]
